FAERS Safety Report 9412562 (Version 3)
Quarter: 2013Q3

REPORT INFORMATION
  Report Type: Spontaneous
  Country: JP (occurrence: JP)
  Receive Date: 20130722
  Receipt Date: 20130927
  Transmission Date: 20140515
  Serious: Yes (Hospitalization)
  Sender: FDA-Public Use
  Company Number: JP-009507513-1306JPN011698

PATIENT
  Age: 91 Year
  Sex: Female
  Weight: 36 kg

DRUGS (8)
  1. PREMINENT TABLETS [Suspect]
     Indication: HYPERTENSION
     Dosage: 1 DF, 1 DAY, AFTER THE BREAKFAST
     Route: 048
     Dates: start: 201103, end: 20130616
  2. CONIEL [Suspect]
     Indication: HYPERTENSION
     Dosage: 4 MG, 1 DAY, AFTER THE BREAKFAST
     Route: 048
     Dates: start: 201103, end: 20130616
  3. PARIET [Suspect]
     Indication: HYPERTENSION
     Dosage: 10 MG, 1 DAY, AFTER THE BREAKFAST
     Route: 048
  4. PRAVASTATIN SODIUM [Suspect]
     Indication: DYSLIPIDAEMIA
     Dosage: 10 MG, 1 DAY, AFTER THE SUPPER
     Route: 048
  5. LENDORMIN [Suspect]
     Indication: INSOMNIA
     Dosage: 0.125 MG, 1 DAY, BEFORE IT SLEEPS
     Route: 048
  6. GASTER [Suspect]
     Indication: DUODENAL ULCER
     Dosage: 20 MG, 1 DAY, BEFORE IT SLEEPS
     Route: 048
  7. URITOS [Suspect]
     Indication: DYSURIA
     Dosage: 0.1 MG, 1 DAY, AFTER THE SUPPER
     Route: 048
  8. MAGMITT [Suspect]
     Indication: GASTRODUODENAL ULCER
     Dosage: 330 MG, 3 DOSES PER 1 DAY
     Route: 048

REACTIONS (3)
  - Hyponatraemia [Recovered/Resolved]
  - Blood sodium decreased [Unknown]
  - Pyelonephritis acute [Recovered/Resolved]
